FAERS Safety Report 4835944-X (Version None)
Quarter: 2005Q4

REPORT INFORMATION
  Report Type: 
  Country: None (occurrence: None)
  Receive Date: 20051118
  Receipt Date: 20051102
  Transmission Date: 20060501
  Serious: Yes (Death)
  Sender: FDA-Public Use
  Company Number: 8009337

PATIENT
  Age: 40 Year
  Sex: Male
  Weight: 104 kg

DRUGS (4)
  1. KEPPRA [Suspect]
     Indication: EPILEPSY
     Dosage: 250 MG 2/D PO
     Route: 048
     Dates: start: 20041222, end: 20050224
  2. PHENYTOIN [Concomitant]
  3. CARBAMAZEPINE [Concomitant]
  4. CLONAZEPAM [Concomitant]

REACTIONS (6)
  - ARTERIOSCLEROSIS CORONARY ARTERY [None]
  - CORONARY ARTERY OCCLUSION [None]
  - GALLBLADDER DISORDER [None]
  - PULMONARY CONGESTION [None]
  - ROAD TRAFFIC ACCIDENT [None]
  - SUDDEN DEATH [None]
